FAERS Safety Report 7272820-X (Version None)
Quarter: 2011Q1

REPORT INFORMATION
  Report Type: 
  Country: None (occurrence: None)
  Receive Date: 20110203
  Receipt Date: 20110128
  Transmission Date: 20110831
  Serious: Yes (Death, Life-Threatening, Hospitalization)
  Sender: FDA-Public Use
  Company Number: US-MERCK-1011USA01660

PATIENT
  Age: 80 Year
  Sex: Male
  Weight: 55 kg

DRUGS (8)
  1. JANUVIA [Suspect]
     Route: 048
  2. LISINOPRIL [Concomitant]
     Route: 048
     Dates: start: 20080802
  3. NORVASC [Concomitant]
     Route: 048
     Dates: start: 20081223
  4. METFORMIN [Concomitant]
     Route: 048
     Dates: start: 20090921
  5. TENORMIN [Concomitant]
     Route: 048
     Dates: start: 20100831
  6. ACTOS [Concomitant]
     Route: 048
     Dates: start: 20100115
  7. ZOCOR [Concomitant]
     Route: 048
     Dates: start: 20090822
  8. NIASPAN [Concomitant]
     Route: 048
     Dates: start: 20100723

REACTIONS (2)
  - PANCREATITIS [None]
  - DEATH [None]
